FAERS Safety Report 5508971-7 (Version None)
Quarter: 2007Q4

REPORT INFORMATION
  Report Type: 
  Country: None (occurrence: None)
  Receive Date: 20071031
  Receipt Date: 20070816
  Transmission Date: 20080405
  Serious: No
  Sender: FDA-Public Use
  Company Number: 2007PV033307

PATIENT
  Age: 72 Year
  Sex: Male
  Weight: 111.5849 kg

DRUGS (4)
  1. SYMLIN [Suspect]
     Indication: TYPE 1 DIABETES MELLITUS
     Dosage: 45, 15 MCG;BID;SC
     Route: 058
     Dates: start: 20070813, end: 20070815
  2. SYMLIN [Suspect]
     Indication: TYPE 1 DIABETES MELLITUS
     Dosage: 45, 15 MCG;BID;SC
     Route: 058
     Dates: start: 20070816
  3. NOVOLOG [Concomitant]
  4. NOVOLIN 50/50 [Concomitant]

REACTIONS (1)
  - BLOOD GLUCOSE INCREASED [None]
